FAERS Safety Report 5079576-X (Version None)
Quarter: 2006Q3

REPORT INFORMATION
  Report Type: 
  Country: None (occurrence: None)
  Receive Date: 20060811
  Receipt Date: 20060811
  Transmission Date: 20061208
  Serious: Yes (Hospitalization)
  Sender: FDA-Public Use
  Company Number: None

PATIENT
  Sex: Female
  Weight: 70 kg

DRUGS (3)
  1. FLUDARABINE [Suspect]
     Indication: STEM CELL TRANSPLANT
     Dosage: 45 MG  DAILY  IV DRIP
     Route: 041
     Dates: start: 20060419, end: 20060423
  2. MELPHALAN [Suspect]
     Dosage: 244.5 MG   DAILY  IV DRIP
     Route: 041
     Dates: start: 20060420, end: 20060423
  3. CAMPATH [Suspect]
     Indication: STEM CELL TRANSPLANT
     Dosage: 20 MG   DAILY   IV DRIP
     Route: 041
     Dates: start: 20060419, end: 20060423

REACTIONS (1)
  - RESPIRATORY DISTRESS [None]
